FAERS Safety Report 5505228-5 (Version None)
Quarter: 2007Q4

REPORT INFORMATION
  Report Type: 
  Country: None (occurrence: None)
  Receive Date: 20071102
  Receipt Date: 20071026
  Transmission Date: 20080405
  Serious: Yes (Other)
  Sender: FDA-Public Use
  Company Number: US-JNJFOC-20071007331

PATIENT
  Age: 81 Year
  Sex: Male
  Weight: 79.38 kg

DRUGS (3)
  1. EXTRA STRENGTH TYLENOL [Suspect]
  2. EXTRA STRENGTH TYLENOL [Suspect]
     Indication: ARTHRALGIA
  3. VITAMIN [Concomitant]
     Indication: GENERAL PHYSICAL CONDITION

REACTIONS (2)
  - BURNING SENSATION [None]
  - HYPOAESTHESIA [None]
